FAERS Safety Report 9515675 (Version 1)
Quarter: 2013Q3

REPORT INFORMATION
  Report Type: Spontaneous
  Country: US (occurrence: US)
  Receive Date: 20130911
  Receipt Date: 20130911
  Transmission Date: 20140515
  Serious: Yes (Hospitalization)
  Sender: FDA-Public Use
  Company Number: US-BAYER-2013-109349

PATIENT
  Age: 28 Year
  Sex: Female

DRUGS (9)
  1. YAZ [Suspect]
  2. IBUPROFEN [Concomitant]
     Dosage: UNK
     Dates: start: 20110616
  3. CEFTRIAXONE [Concomitant]
     Dosage: UNK
     Dates: start: 20110419
  4. CEFTRIAXONE [Concomitant]
     Dosage: UNK
     Dates: start: 20110510
  5. DICYCLOMINE [Concomitant]
     Dosage: UNK
     Dates: start: 20110520
  6. CHOLESTYRAMINE [Concomitant]
     Dosage: UNK
     Dates: start: 20110520
  7. DEPAKOTE [Concomitant]
     Indication: BIPOLAR DISORDER
  8. ZYPREXA [Concomitant]
  9. MANNITOL [Concomitant]

REACTIONS (1)
  - Cerebrovascular accident [Recovering/Resolving]
